FAERS Safety Report 16407034 (Version 3)
Quarter: 2019Q2

REPORT INFORMATION
  Report Type: Spontaneous
  Country: US (occurrence: US)
  Receive Date: 20190608
  Receipt Date: 20190612
  Transmission Date: 20190711
  Serious: Yes (Other)
  Sender: FDA-Public Use
  Company Number: US-JNJFOC-20190601443

PATIENT
  Sex: Male
  Weight: 15.88 kg

DRUGS (1)
  1. NEUTROGENA WET SKIN KIDS SUNSCREEN STICK SPF70 (AVOBENZONE\OCTISALATE\OCTOCRYLENE\OXYBENZONE) [Suspect]
     Active Substance: AVOBENZONE\OCTISALATE\OCTOCRYLENE\OXYBENZONE
     Indication: PROPHYLAXIS AGAINST SOLAR RADIATION
     Route: 061

REACTIONS (3)
  - Pharyngeal ulceration [Recovering/Resolving]
  - Hypersensitivity [Recovering/Resolving]
  - Oropharyngeal blistering [Recovering/Resolving]
